FAERS Safety Report 24257848 (Version 1)
Quarter: 2024Q3

REPORT INFORMATION
  Report Type: Spontaneous
  Country: US (occurrence: US)
  Receive Date: 20240828
  Receipt Date: 20240828
  Transmission Date: 20241017
  Serious: No
  Sender: RECKITT BENCKISER
  Company Number: US-PROD-AS2-212756134-RB-105535-2023

PATIENT
  Age: 85 Year
  Sex: Male

DRUGS (4)
  1. MUCINEX [Suspect]
     Active Substance: GUAIFENESIN
     Indication: Cough
     Dosage: UNKNOWN
     Route: 048
  2. ASTEPRO [Concomitant]
     Active Substance: AZELASTINE HYDROCHLORIDE
     Indication: Product used for unknown indication
     Route: 065
  3. VENCLEXTA [Concomitant]
     Active Substance: VENETOCLAX
     Indication: Product used for unknown indication
     Route: 065
  4. GAZYVA [Concomitant]
     Active Substance: OBINUTUZUMAB
     Indication: Product used for unknown indication
     Route: 065

REACTIONS (1)
  - Drug ineffective [Not Recovered/Not Resolved]
